FAERS Safety Report 6486612-2 (Version None)
Quarter: 2009Q4

REPORT INFORMATION
  Report Type: 
  Country: None (occurrence: None)
  Receive Date: 20091210
  Receipt Date: 20091201
  Transmission Date: 20100525
  Serious: Yes (Other)
  Sender: FDA-Public Use
  Company Number: US-ROCHE-669501

PATIENT
  Sex: Female

DRUGS (2)
  1. BONIVA [Suspect]
     Indication: OSTEOPOROSIS
     Dosage: FOR 10 YEARS
     Route: 048
  2. LIPITOR [Concomitant]

REACTIONS (3)
  - BONE DENSITY DECREASED [None]
  - TOOTH DISORDER [None]
  - TOOTH INFECTION [None]
